FAERS Safety Report 19310216 (Version 1)
Quarter: 2021Q2

REPORT INFORMATION
  Report Type: Spontaneous
  Country: CN (occurrence: CN)
  Receive Date: 20210526
  Receipt Date: 20210526
  Transmission Date: 20210717
  Serious: Yes (Disabling, Other)
  Sender: FDA-Public Use
  Company Number: CN-PFIZER INC-2021571124

PATIENT
  Age: 52 Year
  Sex: Female
  Weight: 55.2 kg

DRUGS (3)
  1. PALONOSETRON. [Suspect]
     Active Substance: PALONOSETRON HYDROCHLORIDE
     Indication: VOMITING
     Dosage: 0.25 MG, 1X/DAY
     Route: 041
     Dates: start: 20210512
  2. CISPLATIN. [Suspect]
     Active Substance: CISPLATIN
     Indication: DIFFUSE LARGE B-CELL LYMPHOMA
     Dosage: 40 MG, 1X/DAY
     Route: 041
     Dates: start: 20210512, end: 20210515
  3. CYTARABINE. [Suspect]
     Active Substance: CYTARABINE
     Indication: DIFFUSE LARGE B-CELL LYMPHOMA
     Dosage: 0.05 G, ALTERNATE DAY
     Route: 037
     Dates: start: 20210510, end: 202105

REACTIONS (3)
  - Nausea [Recovering/Resolving]
  - Vomiting projectile [Recovering/Resolving]
  - Eating disorder [Recovering/Resolving]

NARRATIVE: CASE EVENT DATE: 20210515
